FAERS Safety Report 9390334 (Version 1)
Quarter: 2013Q3

REPORT INFORMATION
  Report Type: Spontaneous
  Country: NL (occurrence: NL)
  Receive Date: 20130709
  Receipt Date: 20130709
  Transmission Date: 20140515
  Serious: Yes (Hospitalization)
  Sender: FDA-Public Use
  Company Number: NL-AMGEN-NLDSP2013047269

PATIENT
  Age: 65 Year
  Sex: Female
  Weight: 73 kg

DRUGS (2)
  1. PROLIA [Suspect]
     Indication: OSTEOPOROSIS
     Dosage: 60 MG, 1 DOSAGE FORM
     Route: 058
     Dates: start: 20121206, end: 201306
  2. BUDENOFALK [Concomitant]
     Dosage: 3 MG, QD
     Dates: start: 2008

REACTIONS (6)
  - Bladder disorder [Recovering/Resolving]
  - Urinary tract infection [Recovering/Resolving]
  - Cystitis noninfective [Unknown]
  - Sleep disorder [Unknown]
  - Nocturia [Recovering/Resolving]
  - Therapeutic response decreased [Unknown]
